FAERS Safety Report 22597024 (Version 1)
Quarter: 2023Q2

REPORT INFORMATION
  Report Type: Spontaneous
  Country: JP (occurrence: JP)
  Receive Date: 20230613
  Receipt Date: 20230613
  Transmission Date: 20230721
  Serious: Yes (Death, Other)
  Sender: FDA-Public Use
  Company Number: JP-JNJFOC-20230604628

PATIENT
  Age: 9 Decade
  Sex: Male

DRUGS (3)
  1. TRAMCET [Suspect]
     Active Substance: ACETAMINOPHEN\TRAMADOL
     Indication: Cancer pain
     Route: 048
  2. TRAMCET [Suspect]
     Active Substance: ACETAMINOPHEN\TRAMADOL
     Route: 048
  3. TAMOXIFEN [Concomitant]
     Active Substance: TAMOXIFEN
     Dosage: DOSE UNKNOWN
     Route: 048

REACTIONS (6)
  - Death [Fatal]
  - Hallucination [Unknown]
  - Hallucination, auditory [Unknown]
  - Paranoia [Unknown]
  - Treatment noncompliance [Unknown]
  - Off label use [Unknown]
